FAERS Safety Report 6327461-5 (Version None)
Quarter: 2009Q3

REPORT INFORMATION
  Report Type: 
  Country: None (occurrence: None)
  Receive Date: 20090825
  Receipt Date: 20090813
  Transmission Date: 20100115
  Serious: Yes (Other)
  Sender: FDA-Public Use
  Company Number: US-PFIZER INC-2007070058

PATIENT
  Sex: Male

DRUGS (1)
  1. CHANTIX [Suspect]
     Indication: SMOKING CESSATION THERAPY
     Dosage: 0.5 MG, UNK
     Route: 048
     Dates: start: 20070817, end: 20080101

REACTIONS (7)
  - ABNORMAL DREAMS [None]
  - DYSGEUSIA [None]
  - INFECTION [None]
  - INSOMNIA [None]
  - ORAL DISORDER [None]
  - TOOTHACHE [None]
  - WEIGHT INCREASED [None]
